FAERS Safety Report 9564959 (Version 2)
Quarter: 2013Q3

REPORT INFORMATION
  Report Type: Report from Study
  Country: MX (occurrence: MX)
  Receive Date: 20130930
  Receipt Date: 20130930
  Transmission Date: 20140515
  Serious: Yes (Other)
  Sender: FDA-Public Use
  Company Number: PHHY2012MX047478

PATIENT
  Age: 71 Year
  Sex: Female

DRUGS (2)
  1. GALVUS MET [Suspect]
     Indication: DIABETES MELLITUS
     Dosage: 1 DF( 850 MG METF AND 50 MG VILDA), DAILY
     Route: 048
     Dates: start: 20111211
  2. CO-DIOVAN [Suspect]
     Indication: HYPERTENSION
     Dosage: 2 DF, (VALS 160 MG, HYDR 12.5 MG) DAILY
     Route: 048
     Dates: start: 20111112

REACTIONS (6)
  - Intervertebral disc protrusion [Not Recovered/Not Resolved]
  - Gait disturbance [Not Recovered/Not Resolved]
  - Dysstasia [Not Recovered/Not Resolved]
  - Ear discomfort [Not Recovered/Not Resolved]
  - Pain in extremity [Not Recovered/Not Resolved]
  - Abdominal discomfort [Not Recovered/Not Resolved]
